FAERS Safety Report 18257475 (Version 4)
Quarter: 2020Q4

REPORT INFORMATION
  Report Type: Spontaneous
  Country: US (occurrence: US)
  Receive Date: 20200911
  Receipt Date: 20201111
  Transmission Date: 20210113
  Serious: No
  Sender: FDA-Public Use
  Company Number: US-PFIZER INC-2020341332

PATIENT
  Age: 13 Year
  Sex: Male

DRUGS (1)
  1. GENOTROPIN [Suspect]
     Active Substance: SOMATROPIN
     Dosage: 2.2 MG
     Dates: start: 202006

REACTIONS (4)
  - Poor quality device used [Unknown]
  - Drug dose omission by device [Unknown]
  - Device power source issue [Unknown]
  - Device information output issue [Unknown]
